FAERS Safety Report 9822408 (Version 4)
Quarter: 2014Q1

REPORT INFORMATION
  Report Type: Spontaneous
  Country: US (occurrence: US)
  Receive Date: 20140116
  Receipt Date: 20140203
  Transmission Date: 20141002
  Serious: Yes (Hospitalization)
  Sender: FDA-Public Use
  Company Number: US-JNJFOC-20140103125

PATIENT
  Age: 40 Year
  Sex: Male

DRUGS (9)
  1. XARELTO [Suspect]
     Indication: HYPERCOAGULATION
     Route: 048
  2. XARELTO [Suspect]
     Indication: PULMONARY EMBOLISM
     Route: 048
  3. XARELTO [Suspect]
     Indication: DEEP VEIN THROMBOSIS
     Route: 048
  4. PLAVIX [Suspect]
     Indication: PRODUCT USED FOR UNKNOWN INDICATION
     Route: 065
  5. ASPIRIN [Suspect]
     Indication: PRODUCT USED FOR UNKNOWN INDICATION
     Dosage: 325 UNITS NOT SPECIFIED
     Route: 065
  6. LITHIUM [Concomitant]
     Route: 065
  7. LASIX [Concomitant]
     Route: 065
  8. CYMBALTA [Concomitant]
     Route: 065
  9. DEXILANT [Concomitant]
     Route: 065

REACTIONS (1)
  - Cerebral haemorrhage [Recovered/Resolved]
